FAERS Safety Report 6356666-2 (Version None)
Quarter: 2009Q3

REPORT INFORMATION
  Report Type: 
  Country: None (occurrence: None)
  Receive Date: 20090915
  Receipt Date: 20090904
  Transmission Date: 20100115
  Serious: Yes (Hospitalization)
  Sender: FDA-Public Use
  Company Number: FR-JNJFOC-20090504048

PATIENT
  Age: 68 Year
  Sex: Male
  Weight: 74 kg

DRUGS (5)
  1. REMICADE [Suspect]
     Route: 042
  2. REMICADE [Suspect]
     Indication: PSORIASIS
     Route: 042
  3. COAPROVEL [Concomitant]
     Dosage: DOSE: 1 TAB
     Route: 048
  4. LERCANIDIPINE [Concomitant]
     Dosage: DOSE: 2 TABS
     Route: 048
  5. PRILOSEC [Concomitant]
     Dosage: DOSE: 1 TAB
     Route: 048

REACTIONS (4)
  - ORTHOSTATIC HYPOTENSION [None]
  - PSORIASIS [None]
  - TUBERCULOSIS [None]
  - TUBERCULOSIS LIVER [None]
